FAERS Safety Report 17559120 (Version 1)
Quarter: 2020Q1

REPORT INFORMATION
  Report Type: Spontaneous
  Country: IT (occurrence: IT)
  Receive Date: 20200319
  Receipt Date: 20200319
  Transmission Date: 20200409
  Serious: Yes (Hospitalization, Other)
  Sender: FDA-Public Use
  Company Number: IT-BAXTER-2020BAX006025

PATIENT
  Sex: Female

DRUGS (9)
  1. CICLOSPORIN [Suspect]
     Active Substance: CYCLOSPORINE
     Indication: CHRONIC GRAFT VERSUS HOST DISEASE
     Route: 065
  2. THIOTEPA. [Suspect]
     Active Substance: THIOTEPA
     Indication: ALLOGENIC STEM CELL TRANSPLANTATION
     Route: 065
     Dates: start: 2015, end: 2015
  3. EPIRUBICIN [Suspect]
     Active Substance: EPIRUBICIN
     Indication: CHRONIC GRAFT VERSUS HOST DISEASE
     Route: 065
  4. MYCOPHENOLATE MOFETIL. [Suspect]
     Active Substance: MYCOPHENOLATE MOFETIL
     Indication: CHRONIC GRAFT VERSUS HOST DISEASE
     Route: 065
  5. TACROLIMUS. [Suspect]
     Active Substance: TACROLIMUS
     Indication: CHRONIC GRAFT VERSUS HOST DISEASE
     Route: 065
     Dates: start: 201702
  6. FLUDARABINE [Suspect]
     Active Substance: FLUDARABINE PHOSPHATE
     Indication: ALLOGENIC STEM CELL TRANSPLANTATION
     Route: 065
     Dates: start: 2015, end: 2015
  7. BUSULFAN. [Suspect]
     Active Substance: BUSULFAN
     Indication: ALLOGENIC STEM CELL TRANSPLANTATION
     Route: 065
     Dates: start: 2015, end: 2015
  8. ENDOXAN BAXTER [Suspect]
     Active Substance: CYCLOPHOSPHAMIDE
     Indication: CHRONIC GRAFT VERSUS HOST DISEASE
     Route: 065
  9. FLUOROURACIL. [Suspect]
     Active Substance: FLUOROURACIL
     Indication: CHRONIC GRAFT VERSUS HOST DISEASE
     Route: 065

REACTIONS (7)
  - Pneumonia influenzal [Recovered/Resolved]
  - Chronic graft versus host disease [Unknown]
  - Pneumocystis jirovecii pneumonia [Recovered/Resolved]
  - Human herpesvirus 6 infection [Recovered/Resolved]
  - Respiratory failure [Recovered/Resolved]
  - JC virus infection [Recovered/Resolved]
  - Progressive multifocal leukoencephalopathy [Recovered/Resolved]
